FAERS Safety Report 16758599 (Version 2)
Quarter: 2019Q3

REPORT INFORMATION
  Report Type: Spontaneous
  Country: US (occurrence: US)
  Receive Date: 20190830
  Receipt Date: 20190919
  Transmission Date: 20191005
  Serious: No
  Sender: FDA-Public Use
  Company Number: US-ASTRAZENECA-2019SF11948

PATIENT
  Age: 54 Year
  Sex: Female
  Weight: 76.7 kg

DRUGS (2)
  1. BYDUREON BCISE [Suspect]
     Active Substance: EXENATIDE
     Indication: TYPE 2 DIABETES MELLITUS
     Route: 058
     Dates: start: 20190801
  2. BYETTA [Suspect]
     Active Substance: EXENATIDE
     Indication: TYPE 2 DIABETES MELLITUS
     Dosage: DOSE AND FREQUENCY UNKNOWN
     Route: 058
     Dates: start: 2008

REACTIONS (10)
  - Restless legs syndrome [Unknown]
  - Bipolar disorder [Unknown]
  - Dysphonia [Unknown]
  - Device leakage [Unknown]
  - Wrong technique in device usage process [Unknown]
  - Cholecystitis [Unknown]
  - Obsessive-compulsive disorder [Unknown]
  - Tremor [Not Recovered/Not Resolved]
  - Thyroid disorder [Unknown]
  - Blood glucose increased [Not Recovered/Not Resolved]

NARRATIVE: CASE EVENT DATE: 2016
